FAERS Safety Report 10151961 (Version 1)
Quarter: 2014Q2

REPORT INFORMATION
  Report Type: Spontaneous
  Country: US (occurrence: US)
  Receive Date: 20140505
  Receipt Date: 20140505
  Transmission Date: 20141212
  Serious: Yes (Other)
  Sender: FDA-Public Use
  Company Number: US-ELI_LILLY_AND_COMPANY-US201404009175

PATIENT
  Sex: Female

DRUGS (9)
  1. HUMALOG 25% LISPRO, 75% NPL [Suspect]
     Indication: DIABETES MELLITUS
     Dosage: 60 U, EACH MORNING
     Route: 065
  2. HUMALOG 25% LISPRO, 75% NPL [Suspect]
     Dosage: 40 U, QD
     Route: 065
  3. HUMALOG 25% LISPRO, 75% NPL [Suspect]
     Dosage: 60 U, EACH EVENING
     Route: 065
  4. LISINOPRIL [Concomitant]
  5. DULOXETINE [Concomitant]
  6. CLOPIDOGREL [Concomitant]
     Dosage: 75 MG, UNK
  7. ATORVASTATIN [Concomitant]
  8. METOPROLOL [Concomitant]
  9. BABY ASPIRIN [Concomitant]
     Dosage: 81 MG, UNK

REACTIONS (3)
  - Eye haemorrhage [Unknown]
  - Cataract [Unknown]
  - Visual acuity reduced [Unknown]
